FAERS Safety Report 9335450 (Version 1)
Quarter: 2013Q2

REPORT INFORMATION
  Report Type: Report from Study
  Country: CA (occurrence: CA)
  Receive Date: 20130605
  Receipt Date: 20130605
  Transmission Date: 20140414
  Serious: Yes (Other)
  Sender: FDA-Public Use
  Company Number: CA-ABBOTT-13P-028-1099623-00

PATIENT
  Age: 25 Year
  Sex: Female
  Weight: 52 kg

DRUGS (2)
  1. KALETRA 200/50 [Suspect]
     Indication: HIV INFECTION
     Dosage: TOTAL DAILY: 800/200 MG, UNIT 200/50 MG 4 TABS
     Route: 048
     Dates: start: 200812
  2. KIVEXA [Concomitant]
     Indication: HIV INFECTION
     Dosage: 600/300 MG
     Route: 048

REACTIONS (4)
  - Haemorrhage [Unknown]
  - Abortion spontaneous [Unknown]
  - Premature separation of placenta [Unknown]
  - Cervix disorder [Unknown]
